FAERS Safety Report 14108200 (Version 2)
Quarter: 2017Q4

REPORT INFORMATION
  Report Type: Spontaneous
  Country: EE (occurrence: EE)
  Receive Date: 20171019
  Receipt Date: 20171024
  Transmission Date: 20180321
  Serious: Yes (Hospitalization, Disabling)
  Sender: FDA-Public Use
  Company Number: EE-SA-2017SA196932

PATIENT
  Age: 66 Year
  Sex: Female

DRUGS (5)
  1. SERETIDE [Concomitant]
     Active Substance: FLUTICASONE PROPIONATE\SALMETEROL XINAFOATE
     Indication: ASTHMA
     Dosage: ROUTE: RESPIRATORY (INHALATION)
     Route: 055
  2. HYDROCHLOROTHIAZIDE/LOSARTAN [Concomitant]
     Indication: HYPERTENSION
     Route: 048
  3. SIMPONI [Suspect]
     Active Substance: GOLIMUMAB
     Indication: RHEUMATOID ARTHRITIS
     Route: 058
     Dates: start: 20131120, end: 20170808
  4. ARAVA [Suspect]
     Active Substance: LEFLUNOMIDE
     Indication: RHEUMATOID ARTHRITIS
     Route: 048
     Dates: start: 20100101
  5. MEDROL [Concomitant]
     Active Substance: METHYLPREDNISOLONE
     Indication: RHEUMATOID ARTHRITIS
     Route: 048
     Dates: start: 20070929

REACTIONS (4)
  - Off label use [Unknown]
  - Intentional product misuse [Unknown]
  - Abscess intestinal [Recovered/Resolved with Sequelae]
  - Diverticulitis [Recovered/Resolved with Sequelae]

NARRATIVE: CASE EVENT DATE: 20170814
